FAERS Safety Report 7832788-1 (Version None)
Quarter: 2011Q4

REPORT INFORMATION
  Report Type: 
  Country: None (occurrence: None)
  Receive Date: 20111024
  Receipt Date: 20111005
  Transmission Date: 20120403
  Serious: No
  Sender: FDA-Public Use
  Company Number: US-BIOGENIDEC-2011BI039933

PATIENT
  Sex: Female

DRUGS (4)
  1. TYSABRI [Suspect]
     Indication: MULTIPLE SCLEROSIS
     Route: 042
     Dates: start: 20081203
  2. TRAZODONE HYDROCHLORIDE [Concomitant]
  3. FENTANYL-100 [Concomitant]
  4. BACLOFEN [Concomitant]

REACTIONS (1)
  - HYPOTENSION [None]
